FAERS Safety Report 7681072-8 (Version None)
Quarter: 2011Q3

REPORT INFORMATION
  Report Type: 
  Country: None (occurrence: None)
  Receive Date: 20110809
  Receipt Date: 20110809
  Transmission Date: 20111222
  Serious: Yes (Disabling)
  Sender: FDA-Public Use
  Company Number: 1022556-2011-00018

PATIENT
  Age: 25 Year
  Sex: Male

DRUGS (1)
  1. ICY HOT NO MESS APPLICATOR 2.5 OZ [Suspect]
     Indication: MYALGIA
     Dosage: TOPICAL ONCE
     Route: 061

REACTIONS (2)
  - APPLICATION SITE VESICLES [None]
  - APPLICATION SITE PAIN [None]
